FAERS Safety Report 6496393-4 (Version None)
Quarter: 2009Q4

REPORT INFORMATION
  Report Type: 
  Country: None (occurrence: None)
  Receive Date: 20091214
  Receipt Date: 20091202
  Transmission Date: 20100525
  Serious: Yes (Disabling, Other)
  Sender: FDA-Public Use
  Company Number: BR-ELI_LILLY_AND_COMPANY-BR200912000722

PATIENT
  Sex: Female
  Weight: 78 kg

DRUGS (13)
  1. HUMALOG [Suspect]
     Indication: TYPE 2 DIABETES MELLITUS
     Dosage: 52 IU, OTHER
     Route: 065
  2. ATENOLOL [Concomitant]
     Dosage: 50 MG, DAILY (1/D)
     Route: 065
  3. PANTOPRAZOL [Concomitant]
     Dosage: 40 MG, DAILY (1/D)
     Route: 065
  4. DIGESAN [Concomitant]
     Dosage: 10 MG, DAILY (1/D)
     Route: 065
  5. CITALOPRAM HYDROBROMIDE [Concomitant]
     Indication: DEPRESSION
     Dosage: 20 MG, AS NEEDED
     Route: 065
  6. VYTORIN [Concomitant]
     Indication: BLOOD CHOLESTEROL INCREASED
     Dosage: UNK, EACH EVENING
     Route: 065
  7. NICOTINIC ACID [Concomitant]
     Indication: BLOOD TRIGLYCERIDES
     Dosage: 500 MG, DAILY (1/D)
  8. CITONEURIN [Concomitant]
     Indication: PAIN IN EXTREMITY
     Dosage: UNK, DAILY (1/D)
  9. SCAFLAN [Concomitant]
     Dosage: 100 MG, 2/D
     Route: 065
  10. BROMAZEPAM [Concomitant]
     Dosage: UNK, EACH EVENING
     Route: 065
  11. CALCIUM [Concomitant]
     Dosage: UNK, UNKNOWN
     Route: 065
  12. GLUCOSAMINE W/CHONDROITIN SULFATE [Concomitant]
     Dosage: UNK, DAILY (1/D)
     Route: 065
  13. LANTUS [Concomitant]
     Dosage: 58 IU, DAILY (1/D)
     Route: 065

REACTIONS (7)
  - ARTHRALGIA [None]
  - INJECTION SITE HAEMORRHAGE [None]
  - INJECTION SITE NODULE [None]
  - LOWER LIMB FRACTURE [None]
  - VISUAL IMPAIRMENT [None]
  - WALKING DISABILITY [None]
  - WEIGHT INCREASED [None]
